FAERS Safety Report 7007736-7 (Version None)
Quarter: 2010Q3

REPORT INFORMATION
  Report Type: 
  Country: None (occurrence: None)
  Receive Date: 20100920
  Receipt Date: 20100909
  Transmission Date: 20110219
  Serious: Yes (Other)
  Sender: FDA-Public Use
  Company Number: 694440

PATIENT
  Age: 49 Year
  Sex: Female

DRUGS (4)
  1. BLEOMYCIN SULFATE [Suspect]
     Indication: HODGKIN'S DISEASE STAGE II
  2. DACARBAZINE [Suspect]
     Indication: HODGKIN'S DISEASE STAGE II
  3. DOXORUBICIN HCL [Suspect]
     Indication: HODGKIN'S DISEASE STAGE II
  4. VINBLASTINE SULFATE [Suspect]
     Indication: HODGKIN'S DISEASE STAGE II

REACTIONS (3)
  - LYMPHADENOPATHY [None]
  - LYMPHOPENIA [None]
  - SARCOIDOSIS [None]
